FAERS Safety Report 24093522 (Version 1)
Quarter: 2024Q3

REPORT INFORMATION
  Report Type: Spontaneous
  Country: FR (occurrence: FR)
  Receive Date: 20240715
  Receipt Date: 20240715
  Transmission Date: 20241017
  Serious: Yes (Hospitalization)
  Sender: MERCK
  Company Number: FR-009507513-2407FRA008826

PATIENT
  Age: 66 Year
  Sex: Male

DRUGS (1)
  1. PEMBROLIZUMAB [Suspect]
     Active Substance: PEMBROLIZUMAB
     Indication: Squamous cell carcinoma of head and neck

REACTIONS (5)
  - Diarrhoea [Unknown]
  - Dehydration [Unknown]
  - Weight decreased [Recovering/Resolving]
  - Appetite disorder [Recovering/Resolving]
  - Oedema peripheral [Unknown]
